FAERS Safety Report 12818608 (Version 2)
Quarter: 2016Q4

REPORT INFORMATION
  Report Type: Report from Study
  Country: US (occurrence: US)
  Receive Date: 20161006
  Receipt Date: 20161221
  Transmission Date: 20170207
  Serious: No
  Sender: FDA-Public Use
  Company Number: PHEH2016US025521

PATIENT
  Sex: Female

DRUGS (1)
  1. COSENTYX [Suspect]
     Active Substance: SECUKINUMAB
     Indication: ANKYLOSING SPONDYLITIS
     Dosage: 150 MG, QMO
     Route: 058

REACTIONS (11)
  - Pain [Unknown]
  - Sinusitis [Unknown]
  - Malaise [Unknown]
  - Nasal congestion [Unknown]
  - Fatigue [Unknown]
  - Rhinorrhoea [Unknown]
  - Laryngitis [Unknown]
  - Pharyngitis [Unknown]
  - Pyrexia [Unknown]
  - Cough [Unknown]
  - Nasopharyngitis [Unknown]
